FAERS Safety Report 5479791-7 (Version None)
Quarter: 2007Q4

REPORT INFORMATION
  Report Type: 
  Country: None (occurrence: None)
  Receive Date: 20071008
  Receipt Date: 20071001
  Transmission Date: 20080405
  Serious: Yes (Other)
  Sender: FDA-Public Use
  Company Number: US-SHR-US-2007-029237

PATIENT
  Age: 19 Year
  Sex: Female
  Weight: 59.9 kg

DRUGS (2)
  1. YAZ [Suspect]
     Dosage: 20 TAB(S), 1X/DAY
     Dates: start: 20070327, end: 20070729
  2. MULTIVIT [Concomitant]
     Dosage: UNK, 1X/DAY
     Route: 048

REACTIONS (3)
  - EXTRASYSTOLES [None]
  - HEART RATE INCREASED [None]
  - PALPITATIONS [None]
